FAERS Safety Report 17035671 (Version 1)
Quarter: 2019Q4

REPORT INFORMATION
  Report Type: Spontaneous
  Country: GB (occurrence: GB)
  Receive Date: 20191115
  Receipt Date: 20191115
  Transmission Date: 20200122
  Serious: Yes (Hospitalization)
  Sender: FDA-Public Use
  Company Number: GB-TEVA-2019-GB-1137841

PATIENT
  Age: 51 Year
  Sex: Female

DRUGS (2)
  1. VERAPAMIL [Suspect]
     Active Substance: VERAPAMIL HYDROCHLORIDE
     Dosage: 120 MG
     Dates: start: 20171004
  2. BISOPROLOL [Suspect]
     Active Substance: BISOPROLOL
     Dosage: 10 MG

REACTIONS (2)
  - Shock [Unknown]
  - Accidental overdose [Unknown]

NARRATIVE: CASE EVENT DATE: 20171006
